FAERS Safety Report 24765140 (Version 1)
Quarter: 2024Q4

REPORT INFORMATION
  Report Type: Spontaneous
  Country: NL (occurrence: NL)
  Receive Date: 20241223
  Receipt Date: 20241223
  Transmission Date: 20250114
  Serious: Yes (Disabling)
  Sender: TEVA
  Company Number: None

PATIENT
  Age: 85 Year
  Sex: Male
  Weight: 63 kg

DRUGS (4)
  1. LEVOFLOXACIN [Suspect]
     Active Substance: LEVOFLOXACIN
     Indication: Epididymitis
     Dosage: 1DD500MG, BRAND NAME NOT SPECIFIED
     Route: 048
     Dates: start: 20240922
  2. TEMAZEPAM [Concomitant]
     Active Substance: TEMAZEPAM
     Indication: Product used for unknown indication
     Dosage: BRAND NAME NOT SPECIFIED
     Route: 048
  3. TIOTROPIUM [Concomitant]
     Active Substance: TIOTROPIUM
     Indication: Product used for unknown indication
     Dosage: 2.5 ?G/DOSE (MICROGRAMS PER DOSE), 2.5UG/DO / BRAND NAME NOT SPECIFIED,
     Route: 065
  4. BECLOMETASONE FORMOTEROL [Concomitant]
     Indication: Product used for unknown indication
     Dosage: 100/6 ?G/DOSE (MICROGRAMS PER DOSE), AEROSOL 100/6UG/DO / BECLOMETASON/FORMOTEROL FISH AER 100/6M...
     Route: 065

REACTIONS (2)
  - Myalgia [Not Recovered/Not Resolved]
  - Arthralgia [Not Recovered/Not Resolved]
